FAERS Safety Report 7688527-0 (Version None)
Quarter: 2011Q3

REPORT INFORMATION
  Report Type: 
  Country: None (occurrence: None)
  Receive Date: 20110817
  Receipt Date: 20110817
  Transmission Date: 20111222
  Serious: No
  Sender: FDA-Public Use
  Company Number: None

PATIENT
  Age: 7 Day
  Sex: Male
  Weight: 96.615 kg

DRUGS (1)
  1. VYVANSE [Suspect]
     Indication: ATTENTION DEFICIT/HYPERACTIVITY DISORDER
     Dosage: 20MG
     Dates: start: 20110805, end: 20110816

REACTIONS (5)
  - MENTAL STATUS CHANGES [None]
  - RASH MACULAR [None]
  - ERECTILE DYSFUNCTION [None]
  - IRRITABILITY [None]
  - DRUG INEFFECTIVE [None]
